FAERS Safety Report 8759443 (Version 2)
Quarter: 2012Q4

REPORT INFORMATION
  Report Type: 
  Country: US (occurrence: US)
  Receive Date: 20120829
  Receipt Date: 20120904
  Transmission Date: 20130627
  Serious: Yes (Death)
  Sender: FDA-Public Use
  Company Number: US-ROCHE-1109771

PATIENT
  Sex: Female
  Weight: 70.37 kg

DRUGS (6)
  1. CELLCEPT [Suspect]
     Indication: PRODUCT USED FOR UNKNOWN INDICATION
     Dosage: 3 tabs
     Route: 048
     Dates: end: 201107
  2. PREDNISONE [Concomitant]
  3. AMLODIPINE [Concomitant]
  4. ALENDRONATE [Concomitant]
  5. VICODIN [Concomitant]
  6. LEVOTHYROXINE [Concomitant]

REACTIONS (1)
  - Death [Fatal]
